FAERS Safety Report 23661102 (Version 1)
Quarter: 2024Q1

REPORT INFORMATION
  Report Type: Spontaneous
  Country: JP (occurrence: JP)
  Receive Date: 20240322
  Receipt Date: 20240322
  Transmission Date: 20240410
  Serious: Yes (Hospitalization)
  Sender: FDA-Public Use
  Company Number: JP-BIOGEN-2024BI01255765

PATIENT

DRUGS (4)
  1. SPINRAZA [Suspect]
     Active Substance: NUSINERSEN
     Indication: Spinal muscular atrophy
     Route: 050
  2. SPINRAZA [Suspect]
     Active Substance: NUSINERSEN
     Dosage: SECOND DOSE: 4 WEEKS LATER
     Route: 050
  3. SPINRAZA [Suspect]
     Active Substance: NUSINERSEN
     Dosage: THIRD DOSE: 8 WEEKS AFTER THE SECOND DOSE
     Route: 050
  4. SPINRAZA [Suspect]
     Active Substance: NUSINERSEN
     Dosage: THE FOURTH AND SUBSEQUENT TREATMENTS WERE PLANNED EVERY 6 MONTHS THEREAFTER.?END DATE OF SPINRAZA...
     Route: 050

REACTIONS (2)
  - SARS-CoV-2 test positive [Unknown]
  - Tongue haematoma [Unknown]
